FAERS Safety Report 4614910-3 (Version None)
Quarter: 2005Q1

REPORT INFORMATION
  Report Type: 
  Country: None (occurrence: None)
  Receive Date: 20050318
  Receipt Date: 20050318
  Transmission Date: 20050727
  Serious: Yes (Hospitalization)
  Sender: FDA-Public Use
  Company Number: None

PATIENT
  Age: 46 Year
  Sex: Female
  Weight: 58.4233 kg

DRUGS (20)
  1. XIGRIS [Suspect]
     Dosage: 24 MG/KG/HR FOR 96 HRS BY IV
     Route: 042
     Dates: start: 20050217, end: 20050220
  2. LITHIUM [Concomitant]
  3. SEROQUEL [Concomitant]
  4. KLONOPIN [Concomitant]
  5. LIBRIUM [Concomitant]
  6. ACTIVAN [Concomitant]
  7. FENTANYL [Concomitant]
  8. ETOMIDATE [Concomitant]
  9. LACTULOSE [Concomitant]
  10. LASIX [Concomitant]
  11. ZOSYN [Concomitant]
  12. PREVACID [Concomitant]
  13. HEPARIN [Concomitant]
  14. MORPHINE [Concomitant]
  15. PROPOFOL [Concomitant]
  16. ALBUTEROL [Concomitant]
  17. COLACE [Concomitant]
  18. SENOKOT [Concomitant]
  19. REGLAN [Concomitant]
  20. POTASSIUM CHLORIDE [Concomitant]

REACTIONS (2)
  - COMA [None]
  - MENTAL STATUS CHANGES [None]
